FAERS Safety Report 13265853 (Version 1)
Quarter: 2017Q1

REPORT INFORMATION
  Report Type: Spontaneous
  Country: US (occurrence: US)
  Receive Date: 20170223
  Receipt Date: 20170223
  Transmission Date: 20170428
  Serious: No
  Sender: FDA-Public Use
  Company Number: US-MYLANLABS-2016M1016043

PATIENT
  Sex: Female
  Weight: 100 kg

DRUGS (3)
  1. ERTAPENEM [Concomitant]
     Active Substance: ERTAPENEM
     Indication: ANIMAL BITE
     Dosage: 100 CC, RATE 200 CC/HR
     Route: 040
  2. EFFEXOR [Concomitant]
     Active Substance: VENLAFAXINE HYDROCHLORIDE
     Indication: SLEEP APNOEA SYNDROME
     Dosage: UNK UNK, ONCE
  3. VANCOMYCIN [Suspect]
     Active Substance: VANCOMYCIN
     Indication: ANIMAL BITE
     Dosage: 250 CC AT A RATE OF 167CC/HR
     Route: 040
     Dates: start: 20160408, end: 20160408

REACTIONS (1)
  - Chest pain [Recovered/Resolved]
